FAERS Safety Report 12828862 (Version 2)
Quarter: 2017Q2

REPORT INFORMATION
  Report Type: Spontaneous
  Country: US (occurrence: US)
  Receive Date: 20161007
  Receipt Date: 20170531
  Transmission Date: 20170830
  Serious: Yes (Other)
  Sender: FDA-Public Use
  Company Number: US-SA-2015SA170173

PATIENT
  Age: 61 Year
  Sex: Male

DRUGS (1)
  1. AUBAGIO [Suspect]
     Active Substance: TERIFLUNOMIDE
     Indication: MULTIPLE SCLEROSIS
     Route: 048
     Dates: start: 20130821

REACTIONS (5)
  - Multiple sclerosis relapse [Recovering/Resolving]
  - Fall [Unknown]
  - Tremor [Recovering/Resolving]
  - Memory impairment [Unknown]
  - Head injury [Unknown]

NARRATIVE: CASE EVENT DATE: 201509
